FAERS Safety Report 20348478 (Version 1)
Quarter: 2022Q1

REPORT INFORMATION
  Report Type: Report from Study
  Country: US (occurrence: US)
  Receive Date: 20220119
  Receipt Date: 20220119
  Transmission Date: 20220423
  Serious: Yes (Hospitalization, Other)
  Sender: FDA-Public Use
  Company Number: US-BRISTOL-MYERS SQUIBB COMPANY-BMS-2022-004937

PATIENT
  Age: 24 Year
  Sex: Female
  Weight: 56.2 kg

DRUGS (7)
  1. NIVOLUMAB [Suspect]
     Active Substance: NIVOLUMAB
     Indication: Primary mediastinal large B-cell lymphoma
     Dosage: 360 MILLIGRAM
     Route: 065
     Dates: start: 20211014, end: 20211014
  2. CYCLOPHOSPHAMIDE [Suspect]
     Active Substance: CYCLOPHOSPHAMIDE
     Indication: Primary mediastinal large B-cell lymphoma
     Dosage: 1260 MILLIGRAM
     Route: 065
     Dates: start: 20211018, end: 20211018
  3. DOXORUBICIN [Suspect]
     Active Substance: DOXORUBICIN
     Indication: Primary mediastinal large B-cell lymphoma
     Dosage: 320 MILLIGRAM
     Route: 065
     Dates: start: 20211014, end: 20211017
  4. ETOPOSIDE [Suspect]
     Active Substance: ETOPOSIDE
     Indication: Primary mediastinal large B-cell lymphoma
     Dosage: 320 MILLIGRAM
     Route: 065
     Dates: start: 20211014, end: 20211017
  5. PREDNISONE [Suspect]
     Active Substance: PREDNISONE
     Indication: Primary mediastinal large B-cell lymphoma
     Dosage: 500 MILLIGRAM
     Route: 065
     Dates: start: 20211014, end: 20211018
  6. RITUXIMAB [Suspect]
     Active Substance: RITUXIMAB
     Indication: Primary mediastinal large B-cell lymphoma
     Dosage: 650 MILLIGRAM
     Route: 065
     Dates: start: 20211014, end: 20211014
  7. VINCRISTINE SULFATE [Suspect]
     Active Substance: VINCRISTINE SULFATE
     Indication: Primary mediastinal large B-cell lymphoma
     Dosage: 320 MILLIGRAM
     Route: 065
     Dates: start: 20211014, end: 20211017

REACTIONS (3)
  - Seizure [Recovering/Resolving]
  - Embolism [Recovering/Resolving]
  - Skin infection [Recovering/Resolving]

NARRATIVE: CASE EVENT DATE: 20211023
